FAERS Safety Report 5846709-4 (Version None)
Quarter: 2008Q3

REPORT INFORMATION
  Report Type: 
  Country: None (occurrence: None)
  Receive Date: 20080815
  Receipt Date: 20080801
  Transmission Date: 20090109
  Serious: Yes (Hospitalization)
  Sender: FDA-Public Use
  Company Number: JP-ELI_LILLY_AND_COMPANY-JP200808002027

PATIENT
  Age: 33 Year
  Sex: Male

DRUGS (1)
  1. HUMALOG [Suspect]
     Dosage: 32 IU, DAILY (1/D)
     Route: 058
     Dates: start: 20051203

REACTIONS (3)
  - ASTHENIA [None]
  - DIABETIC KETOACIDOSIS [None]
  - HYPOGLYCAEMIA [None]
